FAERS Safety Report 6294374-7 (Version None)
Quarter: 2009Q3

REPORT INFORMATION
  Report Type: 
  Country: None (occurrence: None)
  Receive Date: 20090803
  Receipt Date: 20090721
  Transmission Date: 20100115
  Serious: Yes (Other)
  Sender: FDA-Public Use
  Company Number: GB-PFIZER INC-2009243120

PATIENT
  Age: 70 Year

DRUGS (5)
  1. ATORVASTATIN CALCIUM [Suspect]
     Indication: HYPERLIPIDAEMIA
     Dosage: 10 MG, UNK
     Route: 048
     Dates: start: 20090608, end: 20090620
  2. CREON [Concomitant]
     Dosage: 1 DF, 2X/DAY
     Route: 048
     Dates: start: 20040517
  3. MESALAZINE [Concomitant]
     Indication: COLITIS ULCERATIVE
     Dosage: 1 G, 2X/DAY
     Route: 048
     Dates: start: 20080414
  4. RAMIPRIL [Concomitant]
     Dosage: 10 MG, 1X/DAY
     Route: 048
     Dates: start: 19930101
  5. SERETIDE [Concomitant]
     Dosage: UNK
     Route: 055
     Dates: start: 20031031

REACTIONS (4)
  - ABDOMINAL PAIN [None]
  - CONDITION AGGRAVATED [None]
  - DIARRHOEA [None]
  - RECTAL HAEMORRHAGE [None]
